FAERS Safety Report 4286987-9 (Version None)
Quarter: 2004Q1

REPORT INFORMATION
  Report Type: 
  Country: None (occurrence: None)
  Receive Date: 20040204
  Receipt Date: 20040129
  Transmission Date: 20041129
  Serious: Yes (Life-Threatening)
  Sender: FDA-Public Use
  Company Number: 2004SE00469

PATIENT
  Age: 40 Year
  Sex: Female

DRUGS (1)
  1. TENORETIC [Suspect]
     Indication: HYPERTENSION
     Dosage: 100/25 MG ONCE DAILY
     Dates: start: 20030214

REACTIONS (4)
  - CARDIAC ARREST [None]
  - DEHYDRATION [None]
  - HYPOKALAEMIA [None]
  - HYPOXIC ENCEPHALOPATHY [None]
